FAERS Safety Report 5306742-8 (Version None)
Quarter: 2007Q2

REPORT INFORMATION
  Report Type: 
  Country: None (occurrence: None)
  Receive Date: 20070418
  Receipt Date: 20070405
  Transmission Date: 20071010
  Serious: Yes (Other)
  Sender: FDA-Public Use
  Company Number: GXKR2007DE03281

PATIENT
  Age: 36 Year
  Sex: Male

DRUGS (1)
  1. LOVABETA (NGX) (LOVASTATIN) TABLET, 40MG [Suspect]
     Dosage: 40 MG, ORAL
     Route: 048
     Dates: start: 20060101

REACTIONS (6)
  - BLOOD CREATINE PHOSPHOKINASE INCREASED [None]
  - BURNING SENSATION [None]
  - EXPIRED DRUG ADMINISTERED [None]
  - MUSCLE SPASMS [None]
  - MUSCULAR WEAKNESS [None]
  - MYOPATHY [None]
